FAERS Safety Report 5814592-9 (Version None)
Quarter: 2008Q3

REPORT INFORMATION
  Report Type: 
  Country: None (occurrence: None)
  Receive Date: 20080718
  Receipt Date: 20071023
  Transmission Date: 20090109
  Serious: No
  Sender: FDA-Public Use
  Company Number: US-KINGPHARMUSA00001-K200701392

PATIENT

DRUGS (4)
  1. LEVOXYL [Suspect]
     Dosage: 175 MCG, QD
     Route: 048
     Dates: start: 20070618, end: 20070101
  2. LEVOXYL [Suspect]
     Dosage: 175 MCG (ONE AND ONE-HALF TABLETS) ON SATURDAYS
     Route: 048
     Dates: start: 20070101
  3. LEVOXYL [Suspect]
     Dosage: 175 MCG (TWO TABLETS) ON SUNDAYS
     Route: 048
     Dates: start: 20070101
  4. LEVOXYL [Suspect]
     Dosage: 175 MCG DAILY MONDAY TO FRIDAY
     Route: 048
     Dates: start: 20070101

REACTIONS (6)
  - ASTHENIA [None]
  - DAYDREAMING [None]
  - FEELING ABNORMAL [None]
  - LETHARGY [None]
  - MEMORY IMPAIRMENT [None]
  - MOOD SWINGS [None]
